FAERS Safety Report 7988642-8 (Version None)
Quarter: 2011Q4

REPORT INFORMATION
  Report Type: 
  Country: None (occurrence: None)
  Receive Date: 20111218
  Receipt Date: 20040720
  Transmission Date: 20120403
  Serious: Yes (Death)
  Sender: FDA-Public Use
  Company Number: PHHY2004VE005212

PATIENT
  Age: 87 Year
  Sex: Male

DRUGS (1)
  1. DIOVAN HCT [Suspect]

REACTIONS (1)
  - RESPIRATORY ARREST [None]
